FAERS Safety Report 13155842 (Version 1)
Quarter: 2017Q1

REPORT INFORMATION
  Report Type: Spontaneous
  Country: US (occurrence: US)
  Receive Date: 20170126
  Receipt Date: 20170126
  Transmission Date: 20170428
  Serious: No
  Sender: FDA-Public Use
  Company Number: US-ROCHE-683941

PATIENT
  Sex: Female
  Weight: 54.5 kg

DRUGS (3)
  1. VALIUM [Suspect]
     Active Substance: DIAZEPAM
     Route: 048
  2. DIAZEPAM. [Suspect]
     Active Substance: DIAZEPAM
     Indication: HEART RATE INCREASED
     Route: 048
  3. VALIUM [Suspect]
     Active Substance: DIAZEPAM
     Indication: HEART RATE INCREASED
     Route: 048

REACTIONS (10)
  - Heart rate increased [Not Recovered/Not Resolved]
  - Anxiety [Unknown]
  - Eye disorder [Not Recovered/Not Resolved]
  - Palpitations [Unknown]
  - Underdose [Unknown]
  - Blood cholesterol increased [Unknown]
  - Feeling abnormal [Unknown]
  - Drug hypersensitivity [Unknown]
  - Drug ineffective [Unknown]
  - Rash [Unknown]
